FAERS Safety Report 8971581 (Version 2)
Quarter: 2013Q1

REPORT INFORMATION
  Report Type: Report from Study
  Country: JP (occurrence: JP)
  Receive Date: 20121217
  Receipt Date: 20130114
  Transmission Date: 20140127
  Serious: Yes (Hospitalization)
  Sender: FDA-Public Use
  Company Number: JP-JNJFOC-20121206926

PATIENT
  Age: 63 Year
  Sex: Male
  Weight: 49 kg

DRUGS (7)
  1. STELARA [Suspect]
     Indication: PSORIASIS
     Route: 058
     Dates: start: 20120810
  2. STELARA [Suspect]
     Indication: PSORIASIS
     Route: 058
     Dates: start: 20111102
  3. STELARA [Suspect]
     Indication: PSORIASIS
     Route: 058
     Dates: start: 20111202
  4. STELARA [Suspect]
     Indication: PSORIASIS
     Route: 058
     Dates: start: 20120224
  5. STELARA [Suspect]
     Indication: PSORIASIS
     Route: 058
     Dates: start: 20120518
  6. ANTEBATE [Concomitant]
     Indication: PSORIASIS
     Route: 061
  7. OXAROL [Concomitant]
     Indication: PSORIASIS
     Route: 061

REACTIONS (1)
  - Oropharyngeal squamous cell carcinoma [Unknown]
